FAERS Safety Report 9937135 (Version 1)
Quarter: 2014Q1

REPORT INFORMATION
  Report Type: Report from Study
  Country: GB (occurrence: GB)
  Receive Date: 20140301
  Receipt Date: 20140301
  Transmission Date: 20141002
  Serious: Yes (Other)
  Sender: FDA-Public Use
  Company Number: GB-ROCHE-1354985

PATIENT
  Sex: Female

DRUGS (3)
  1. RITUXIMAB [Suspect]
     Indication: RHEUMATOID ARTHRITIS
     Route: 065
     Dates: start: 20110109
  2. METHOTREXATE [Concomitant]
  3. SULPHASALAZINE [Concomitant]
     Route: 065
     Dates: start: 201302

REACTIONS (2)
  - Lung neoplasm malignant [Unknown]
  - Metastases to lung [Unknown]
